FAERS Safety Report 6925282-3 (Version None)
Quarter: 2010Q3

REPORT INFORMATION
  Report Type: 
  Country: None (occurrence: None)
  Receive Date: 20100816
  Receipt Date: 20100805
  Transmission Date: 20110219
  Serious: Yes (Hospitalization)
  Sender: FDA-Public Use
  Company Number: FR-BRISTOL-MYERS SQUIBB COMPANY-15237787

PATIENT
  Age: 63 Year
  Sex: Male

DRUGS (6)
  1. ERBITUX [Suspect]
     Indication: LARYNGEAL CANCER
     Dosage: NO OF COURSE:5
     Route: 042
     Dates: start: 20100401
  2. FLUOROURACIL [Suspect]
     Indication: LARYNGEAL CANCER
     Dosage: NO COURSE:5
     Route: 042
     Dates: start: 20100401
  3. VALSARTAN AND HYDROCHLOROTHIAZIDE [Concomitant]
     Dosage: 1DF=160MG/25MG; TABS
     Route: 048
     Dates: start: 19950101
  4. PANTOPRAZOLE [Concomitant]
     Route: 048
     Dates: start: 20100401
  5. PARAPLATIN [Concomitant]
     Indication: LARYNGEAL CANCER
     Dosage: SOLN FOR INJ
     Route: 042
     Dates: start: 20100401
  6. KYTRIL [Concomitant]
     Dates: start: 20100401

REACTIONS (3)
  - DERMATITIS EXFOLIATIVE [None]
  - MELANODERMIA [None]
  - MUCOSAL INFLAMMATION [None]
